FAERS Safety Report 21736716 (Version 4)
Quarter: 2024Q1

REPORT INFORMATION
  Report Type: Spontaneous
  Country: JP (occurrence: JP)
  Receive Date: 20221216
  Receipt Date: 20240108
  Transmission Date: 20240410
  Serious: Yes (Hospitalization, Other)
  Sender: FDA-Public Use
  Company Number: None

PATIENT
  Age: 8 Decade
  Sex: Female
  Weight: 42 kg

DRUGS (13)
  1. PREDNISOLONE [Suspect]
     Active Substance: PREDNISOLONE
     Indication: Autoimmune hepatitis
     Dosage: 7.5 MILLIGRAM, PER DAY
     Route: 048
     Dates: start: 2019, end: 2019
  2. PREDNISOLONE [Suspect]
     Active Substance: PREDNISOLONE
     Dosage: 15 MILLIGRAM, PER DAY
     Route: 048
     Dates: start: 2019, end: 2019
  3. PREDNISOLONE [Suspect]
     Active Substance: PREDNISOLONE
     Dosage: 10 MILLIGRAM, PER DAY
     Route: 048
     Dates: start: 2019, end: 2019
  4. PREDNISOLONE [Suspect]
     Active Substance: PREDNISOLONE
     Dosage: 5 MILLIGRAM, PER DAY
     Route: 048
     Dates: start: 2019, end: 2021
  5. PREDNISOLONE [Suspect]
     Active Substance: PREDNISOLONE
     Dosage: 20 MILLIGRAM, PER DAY
     Route: 048
     Dates: start: 2021, end: 2021
  6. PREDNISOLONE [Suspect]
     Active Substance: PREDNISOLONE
     Dosage: 12.5 MILLIGRAM, PER DAY
     Route: 048
     Dates: start: 2021, end: 2021
  7. PREDNISOLONE [Suspect]
     Active Substance: PREDNISOLONE
     Dosage: 6.25 MILLIGRAM, PER DAY
     Route: 048
     Dates: start: 2021, end: 2021
  8. PREDNISOLONE [Suspect]
     Active Substance: PREDNISOLONE
     Dosage: 7.5 MILLIGRAM, PER DAY
     Route: 048
     Dates: start: 2021, end: 2021
  9. URSODIOL [Suspect]
     Active Substance: URSODIOL
     Indication: Liver injury
     Dosage: 150 MILLIGRAM, PER DAY
     Route: 065
     Dates: start: 2019, end: 2021
  10. AZATHIOPRINE [Suspect]
     Active Substance: AZATHIOPRINE
     Indication: Autoimmune hepatitis
     Dosage: 100 MILLIGRAM, PER DAY
     Route: 048
     Dates: start: 2021, end: 2021
  11. AZATHIOPRINE [Suspect]
     Active Substance: AZATHIOPRINE
     Dosage: 50 MILLIGRAM, PER DAY
     Route: 048
     Dates: start: 2021, end: 2021
  12. OLMESARTAN [Concomitant]
     Active Substance: OLMESARTAN
     Indication: Hypertension
     Dosage: UNK
     Route: 065
     Dates: start: 2019
  13. NIFEDIPINE [Concomitant]
     Active Substance: NIFEDIPINE
     Indication: Hypertension
     Dosage: UNK
     Route: 065
     Dates: start: 2019

REACTIONS (7)
  - Hepatic fibrosis [Recovered/Resolved]
  - Hepatitis [Recovered/Resolved]
  - Hepatitis viral [Recovered/Resolved]
  - Hepatitis E [Recovered/Resolved]
  - Therapy partial responder [Unknown]
  - Treatment failure [Unknown]
  - Off label use [Unknown]

NARRATIVE: CASE EVENT DATE: 20190101
